FAERS Safety Report 9180724 (Version 2)
Quarter: 2013Q1

REPORT INFORMATION
  Report Type: Spontaneous
  Country: US (occurrence: None)
  Receive Date: 20130320
  Receipt Date: 20130327
  Transmission Date: 20140127
  Serious: Yes (Other)
  Sender: FDA-Public Use
  Company Number: AUR-APL-2013-02268

PATIENT
  Age: 82 Year
  Sex: Male

DRUGS (5)
  1. CLARITHROMYCIN [Suspect]
     Indication: HELICOBACTER INFECTION
     Dosage: 100MG (500 MG,2 IN 1 D)
     Route: 048
  2. AMOXICILLIN [Suspect]
     Indication: HELICOBACTER INFECTION
     Dosage: 1000MG (500 MG,2 IN 1 D)
     Route: 048
  3. OMEPRAZOLE [Suspect]
     Indication: HELICOBACTER INFECTION
     Dosage: 40MG (20 MG,2 IN 1 D)
     Route: 048
  4. INSULIN DETEMIR [Suspect]
     Indication: TYPE 2 DIABETES MELLITUS
     Route: 048
  5. INSULIN ASPART (INSULIN ASPART) [Concomitant]
     Indication: TYPE 2 DIABETES MELLITUS

REACTIONS (3)
  - Hypoglycaemia [None]
  - Drug interaction [None]
  - Helicobacter infection [None]
